FAERS Safety Report 11867554 (Version 1)
Quarter: 2015Q4

REPORT INFORMATION
  Report Type: Report from Study
  Country: US (occurrence: US)
  Receive Date: 20151224
  Receipt Date: 20151224
  Transmission Date: 20160305
  Serious: Yes (Hospitalization, Other)
  Sender: FDA-Public Use
  Company Number: US-UCBSA-2015039815

PATIENT
  Age: 82 Year
  Sex: Female

DRUGS (9)
  1. LASIX [Concomitant]
     Active Substance: FUROSEMIDE
     Indication: UNEVALUABLE EVENT
     Dosage: 20 MG, UNK
  2. WARFARIN [Concomitant]
     Active Substance: WARFARIN
     Indication: PRODUCT USED FOR UNKNOWN INDICATION
     Dosage: UNK
     Dates: end: 20151207
  3. LACOSAMIDE [Suspect]
     Active Substance: LACOSAMIDE
     Indication: SEIZURE
     Dosage: 100 MG, 2X/DAY (BID)
     Route: 048
     Dates: end: 2014
  4. LACOSAMIDE [Suspect]
     Active Substance: LACOSAMIDE
     Dosage: 75 MG, 2X/DAY (BID)
     Dates: start: 2014
  5. ZONEGRAN [Concomitant]
     Active Substance: ZONISAMIDE
     Indication: SEIZURE
     Dosage: 300 MG, 2X/DAY (BID)
     Route: 048
  6. SIMVASTATIN. [Concomitant]
     Active Substance: SIMVASTATIN
     Indication: BLOOD CHOLESTEROL
     Dosage: 40 MG, ONCE DAILY (QD)
     Route: 048
  7. LASIX [Concomitant]
     Active Substance: FUROSEMIDE
     Dosage: 40 MG, UNK
     Route: 048
     Dates: start: 2012
  8. LEVOTHYROXINE. [Concomitant]
     Active Substance: LEVOTHYROXINE
     Indication: THYROID DISORDER
     Dosage: 100 ?G, ONCE DAILY (QD)
     Route: 048
  9. METOPROLOL [Concomitant]
     Active Substance: METOPROLOL
     Indication: ATRIAL FIBRILLATION
     Dosage: 25 MG, 2X/DAY (BID)
     Route: 048
     Dates: start: 2007

REACTIONS (9)
  - Fall [Recovered/Resolved]
  - Head injury [Recovering/Resolving]
  - Hydrocephalus [Unknown]
  - Seizure [Recovered/Resolved]
  - Weight decreased [Recovered/Resolved]
  - Dysphagia [Recovered/Resolved]
  - Gait disturbance [Not Recovered/Not Resolved]
  - Dementia [Recovering/Resolving]
  - Decreased appetite [Recovered/Resolved]

NARRATIVE: CASE EVENT DATE: 2014
